FAERS Safety Report 5333180-4 (Version None)
Quarter: 2007Q2

REPORT INFORMATION
  Report Type: 
  Country: None (occurrence: None)
  Receive Date: 20070524
  Receipt Date: 20070514
  Transmission Date: 20071010
  Serious: Yes (Other)
  Sender: FDA-Public Use
  Company Number: US-SANOFI-SYNTHELABO-A03200703093

PATIENT
  Sex: Female
  Weight: 68 kg

DRUGS (4)
  1. TYLENOL [Concomitant]
     Dosage: UNK
     Route: 065
  2. EFFEXOR XR [Concomitant]
     Route: 048
  3. MULTI-VITAMIN [Concomitant]
     Dosage: UNK
     Route: 065
  4. AMBIEN [Suspect]
     Indication: INSOMNIA
     Route: 048
     Dates: end: 20070511

REACTIONS (6)
  - CONVULSION [None]
  - FATIGUE [None]
  - HALLUCINATION [None]
  - LABORATORY TEST ABNORMAL [None]
  - LOSS OF CONSCIOUSNESS [None]
  - MYDRIASIS [None]
